FAERS Safety Report 7679506-8 (Version None)
Quarter: 2011Q3

REPORT INFORMATION
  Report Type: 
  Country: None (occurrence: None)
  Receive Date: 20110812
  Receipt Date: 20110808
  Transmission Date: 20111222
  Serious: Yes (Hospitalization, Other)
  Sender: FDA-Public Use
  Company Number: US-PFIZER INC-2011087654

PATIENT
  Sex: Female
  Weight: 84.807 kg

DRUGS (3)
  1. DIOVAN HCT [Suspect]
     Dosage: UNK
     Dates: end: 20090101
  2. CELEBREX [Suspect]
     Dosage: UNK
     Dates: end: 20090101
  3. TORADOL [Suspect]
     Dosage: 15 MG, UNK
     Route: 042
     Dates: end: 20090101

REACTIONS (4)
  - RENAL FAILURE [None]
  - UPPER LIMB FRACTURE [None]
  - MULTIPLE MYELOMA [None]
  - NAUSEA [None]
